FAERS Safety Report 12677670 (Version 2)
Quarter: 2016Q3

REPORT INFORMATION
  Report Type: Spontaneous
  Country: US (occurrence: US)
  Receive Date: 20160823
  Receipt Date: 20160902
  Transmission Date: 20161109
  Serious: No
  Sender: FDA-Public Use
  Company Number: US-PFIZER INC-2016372373

PATIENT
  Sex: Female

DRUGS (1)
  1. FLECTOR [Suspect]
     Active Substance: DICLOFENAC EPOLAMINE
     Indication: PAIN
     Dosage: 1.3 PERCENT PATCH APPLIED TWICE A DAY, EVERY 12 HOURS
     Dates: start: 2016

REACTIONS (2)
  - Product adhesion issue [Unknown]
  - No adverse event [Unknown]
